FAERS Safety Report 4404312-7 (Version None)
Quarter: 2004Q3

REPORT INFORMATION
  Report Type: 
  Country: None (occurrence: None)
  Receive Date: 20040721
  Receipt Date: 20040721
  Transmission Date: 20050211
  Serious: Yes (Hospitalization)
  Sender: FDA-Public Use
  Company Number: None

PATIENT
  Age: 75 Year
  Sex: Male

DRUGS (9)
  1. PREDNISONE [Suspect]
     Indication: CHRONIC OBSTRUCTIVE AIRWAYS DISEASE
     Dosage: 60 MG QD THEN DECREASING DOSE
  2. GATIFLOXACIN [Concomitant]
  3. DONEZERIL [Concomitant]
  4. KCL TAB [Concomitant]
  5. VERAPAMIL [Concomitant]
  6. NORTIPTYLINE [Concomitant]
  7. TERAZOSIN HCL [Concomitant]
  8. THEOPHYLLINE [Concomitant]
  9. TRAZODONE HCL [Concomitant]

REACTIONS (5)
  - HALLUCINATION [None]
  - HYPONATRAEMIA [None]
  - INSOMNIA [None]
  - MENTAL STATUS CHANGES [None]
  - PSYCHOTIC DISORDER [None]
